FAERS Safety Report 5583085-9 (Version None)
Quarter: 2008Q1

REPORT INFORMATION
  Report Type: 
  Country: None (occurrence: None)
  Receive Date: 20080107
  Receipt Date: 20071226
  Transmission Date: 20080703
  Serious: Yes (Hospitalization)
  Sender: FDA-Public Use
  Company Number: FR-WYE-H01956808

PATIENT
  Sex: Male

DRUGS (6)
  1. CORDARONE [Suspect]
     Dosage: 200 MG TABLET/DOSE AND FREQUENCY NOT PROVIDED
     Route: 048
     Dates: end: 20070601
  2. POTASSIUM CHLORIDE [Concomitant]
     Route: 048
  3. FONZYLANE [Concomitant]
     Route: 048
  4. ALPRESS [Concomitant]
     Route: 048
  5. TENORMIN [Suspect]
     Dosage: DOSE AND FREQUENCY NOT PROVIDED
     Route: 048
     Dates: end: 20070601
  6. NEBIVOLOL [Concomitant]
     Route: 048

REACTIONS (3)
  - CONDITION AGGRAVATED [None]
  - ECZEMA [None]
  - PHOTOSENSITIVITY ALLERGIC REACTION [None]
